FAERS Safety Report 10171554 (Version 1)
Quarter: 2014Q2

REPORT INFORMATION
  Report Type: Spontaneous
  Country: US (occurrence: US)
  Receive Date: 20140514
  Receipt Date: 20140514
  Transmission Date: 20141212
  Serious: Yes (Hospitalization)
  Sender: FDA-Public Use
  Company Number: US-ASTRAZENECA-2014SE31433

PATIENT
  Age: 75 Year
  Sex: Male
  Weight: 86.2 kg

DRUGS (12)
  1. SYMBICORT [Suspect]
     Indication: CHRONIC OBSTRUCTIVE PULMONARY DISEASE
     Dosage: 160/4.5, 2 PUFFS BID
     Route: 055
  2. SYMBICORT [Suspect]
     Indication: CHRONIC OBSTRUCTIVE PULMONARY DISEASE
     Dosage: 160/4.5, 2 PUFFS DAILY
     Route: 055
     Dates: start: 201401
  3. METOPROLOL SUCCINATE [Suspect]
     Indication: BLOOD PRESSURE ABNORMAL
     Dosage: UNKNOWN UNK
     Route: 048
  4. SIMVASTATIN [Concomitant]
     Indication: BLOOD CHOLESTEROL ABNORMAL
     Dosage: UNKNOWN UNK
     Route: 048
  5. ALLOPURINOL [Concomitant]
     Indication: GOUT
     Route: 048
  6. LOSARTAN POTASSIUM [Concomitant]
     Route: 048
  7. NORTRIPTILINE [Concomitant]
     Indication: IRRITABLE BOWEL SYNDROME
     Dosage: UNKNOWN UNK
     Route: 048
  8. CLONIDINE PATCH [Concomitant]
     Indication: BLOOD PRESSURE ABNORMAL
     Dosage: UNKNOWN UNK
     Route: 061
     Dates: start: 2010
  9. ASPIRIN [Concomitant]
     Route: 048
  10. ALLEGRA [Concomitant]
     Indication: SINUS DISORDER
     Route: 048
  11. ALLEGRA [Concomitant]
     Indication: MULTIPLE ALLERGIES
     Route: 048
  12. FLUTICASONE NASAL SPRAY [Concomitant]
     Indication: MULTIPLE ALLERGIES
     Dosage: ONE SPRAY IN EACH NO BID
     Route: 045

REACTIONS (4)
  - Renal hypertension [Recovered/Resolved]
  - Renal failure chronic [Unknown]
  - Blood pressure abnormal [Recovered/Resolved]
  - Intentional product misuse [Unknown]
